FAERS Safety Report 21009005 (Version 1)
Quarter: 2022Q2

REPORT INFORMATION
  Report Type: Spontaneous
  Country: US (occurrence: US)
  Receive Date: 20220627
  Receipt Date: 20220627
  Transmission Date: 20220720
  Serious: Yes (Life-Threatening, Hospitalization, Other)
  Sender: FDA-Public Use
  Company Number: US-MLMSERVICE-20220613-3606572-1

PATIENT
  Age: 10 Year
  Sex: Male

DRUGS (2)
  1. PROPOFOL [Suspect]
     Active Substance: PROPOFOL
     Indication: Sedative therapy
     Dosage: AVERAGE RATE OF 8.3 MG/KG/H (3-10.8 MG/KG/H) OVER 65 HOURS
     Route: 041
  2. NOREPINEPHRINE [Suspect]
     Active Substance: NOREPINEPHRINE
     Indication: Blood pressure management
     Dosage: UNKNOWN
     Route: 065

REACTIONS (1)
  - Propofol infusion syndrome [Recovered/Resolved]
